APPROVED DRUG PRODUCT: LAMOTRIGINE
Active Ingredient: LAMOTRIGINE
Strength: 100MG
Dosage Form/Route: TABLET, ORALLY DISINTEGRATING;ORAL
Application: A217100 | Product #003 | TE Code: AB
Applicant: TORRENT PHARMACEUTICALS LTD
Approved: Jan 8, 2026 | RLD: No | RS: No | Type: RX